FAERS Safety Report 6245438-5 (Version None)
Quarter: 2009Q2

REPORT INFORMATION
  Report Type: 
  Country: None (occurrence: None)
  Receive Date: 20090625
  Receipt Date: 20090624
  Transmission Date: 20091009
  Serious: Yes (Other)
  Sender: FDA-Public Use
  Company Number: BE-BRISTOL-MYERS SQUIBB COMPANY-14666952

PATIENT
  Age: 45 Year
  Sex: Female

DRUGS (4)
  1. EFAVIRENZ [Suspect]
     Indication: HIV INFECTION
     Route: 048
     Dates: start: 20070924, end: 20090515
  2. TRUVADA [Suspect]
     Indication: HIV INFECTION
     Dosage: FORM TAB.1 DF = 1 TABLET.
     Route: 048
     Dates: start: 20070924, end: 20090515
  3. KALETRA [Suspect]
     Indication: HIV INFECTION
     Route: 048
     Dates: start: 20090515, end: 20090526
  4. COMBIVIR [Suspect]
     Indication: HIV INFECTION
     Route: 048
     Dates: start: 20090515, end: 20090526

REACTIONS (2)
  - ABORTION SPONTANEOUS [None]
  - PREGNANCY [None]
